FAERS Safety Report 5849156-4 (Version None)
Quarter: 2008Q3

REPORT INFORMATION
  Report Type: 
  Country: None (occurrence: None)
  Receive Date: 20080818
  Receipt Date: 20080818
  Transmission Date: 20090109
  Serious: No
  Sender: FDA-Public Use
  Company Number: None

PATIENT
  Age: 52 Year
  Sex: Female
  Weight: 47.6277 kg

DRUGS (2)
  1. BONIVA [Suspect]
     Indication: ANKLE FRACTURE
     Dosage: 150MG MONTHLY
     Dates: start: 20080801, end: 20080815
  2. BONIVA [Suspect]
     Indication: OSTEOPOROSIS
     Dosage: 150MG MONTHLY
     Dates: start: 20080801, end: 20080815

REACTIONS (4)
  - DEPRESSION [None]
  - FEELING ABNORMAL [None]
  - JAW DISORDER [None]
  - PAIN IN JAW [None]
